FAERS Safety Report 4352735-7 (Version None)
Quarter: 2004Q2

REPORT INFORMATION
  Report Type: 
  Country: None (occurrence: None)
  Receive Date: 20040504
  Receipt Date: 20040318
  Transmission Date: 20050107
  Serious: Yes (Other)
  Sender: FDA-Public Use
  Company Number: NZ-GLAXOSMITHKLINE-B0327041A

PATIENT
  Age: 57 Year
  Sex: Male
  Weight: 76 kg

DRUGS (6)
  1. AVANDIA [Suspect]
     Dosage: 4MG PER DAY
     Dates: start: 20031101
  2. INHIBACE PLUS [Concomitant]
     Indication: HYPERTENSION
     Route: 048
  3. ASPEC [Concomitant]
     Dosage: 75MG PER DAY
     Route: 048
  4. MULTIVITE [Concomitant]
     Indication: NUTRITIONAL SUPPORT
     Dosage: 2TAB PER DAY
     Route: 048
  5. LIPEX [Concomitant]
     Indication: BLOOD CHOLESTEROL INCREASED
     Dosage: 40MG PER DAY
     Route: 048
  6. LOSEC [Concomitant]
     Indication: ILL-DEFINED DISORDER
     Dosage: 20MG PER DAY
     Route: 048

REACTIONS (1)
  - FAECAL INCONTINENCE [None]
